FAERS Safety Report 4638525-6 (Version None)
Quarter: 2005Q2

REPORT INFORMATION
  Report Type: 
  Country: None (occurrence: None)
  Receive Date: 20050418
  Receipt Date: 20050418
  Transmission Date: 20051028
  Serious: No
  Sender: FDA-Public Use
  Company Number: None

PATIENT
  Sex: Male
  Weight: 69.8 kg

DRUGS (2)
  1. CYTARABINE [Suspect]
     Indication: ACUTE MYELOID LEUKAEMIA
     Dosage: SEE IMAGE
     Route: 042
     Dates: start: 20050330
  2. DAUNORUBICIN HCL [Suspect]
     Dosage: SEE IMAGE

REACTIONS (6)
  - BODY TEMPERATURE INCREASED [None]
  - BRONCHOSCOPY ABNORMAL [None]
  - HYPOXIA [None]
  - LUNG INFILTRATION [None]
  - PSEUDOMONAS INFECTION [None]
  - WEIGHT INCREASED [None]
